FAERS Safety Report 10885194 (Version 1)
Quarter: 2015Q1

REPORT INFORMATION
  Report Type: Spontaneous
  Country: US (occurrence: US)
  Receive Date: 20150304
  Receipt Date: 20150304
  Transmission Date: 20150721
  Serious: Yes (Death)
  Sender: FDA-Public Use
  Company Number: US-BANPHARM-20153612

PATIENT
  Age: 68 Year
  Sex: Female

DRUGS (16)
  1. CODEINE/TERPIN HYDRATE [Suspect]
     Active Substance: CODEINE\TERPIN HYDRATE
  2. CEFIXIME. [Suspect]
     Active Substance: CEFIXIME
  3. DEXTROMETHORPHAN/SALICYLATE [Suspect]
     Active Substance: DEXTROMETHORPHAN SALICYLATE
  4. ANTIBIOTIC, MACROLIDE [Suspect]
     Active Substance: UNSPECIFIED INGREDIENT
  5. CEPHALEXIN. [Suspect]
     Active Substance: CEPHALEXIN
  6. ANTIHISTAMINE/DECONGESTANT [Suspect]
     Active Substance: UNSPECIFIED INGREDIENT
  7. TETRAHYDROPALMATINE [Suspect]
     Active Substance: TETRAHYDROPALMATINE
  8. SALICYLATE [Suspect]
     Active Substance: SALICYLIC ACID
  9. LYSOZYME [Suspect]
     Active Substance: LYSOZYME
  10. ANALGESICS, UNKNOWN [Suspect]
     Active Substance: UNSPECIFIED INGREDIENT
  11. EPRAZINONE [Suspect]
     Active Substance: EPRAZINONE
  12. PIRACETAM [Suspect]
     Active Substance: PIRACETAM
  13. AMPICILLIN [Suspect]
     Active Substance: AMPICILLIN
  14. DIPHENHYDRAMINE UNKNOWN PRODUCT [Suspect]
     Active Substance: DIPHENHYDRAMINE
  15. N-ACETYLCSYSTEINE [Suspect]
     Active Substance: ACETYLCYSTEINE
  16. CODEINE [Suspect]
     Active Substance: CODEINE

REACTIONS (2)
  - Exposure via ingestion [None]
  - Completed suicide [Fatal]
